FAERS Safety Report 5324136-6 (Version None)
Quarter: 2007Q2

REPORT INFORMATION
  Report Type: 
  Country: None (occurrence: None)
  Receive Date: 20070514
  Receipt Date: 20061017
  Transmission Date: 20071010
  Serious: No
  Sender: FDA-Public Use
  Company Number: A0624142A

PATIENT
  Age: 28 Year
  Sex: Female

DRUGS (2)
  1. RELAFEN [Suspect]
     Indication: DRUG USE FOR UNKNOWN INDICATION
     Dosage: 500MG TWICE PER DAY
     Route: 048
     Dates: start: 20060925
  2. ACTIQ [Suspect]
     Dosage: 400MCG AS REQUIRED
     Dates: start: 20060922

REACTIONS (7)
  - DYSPEPSIA [None]
  - HYPERCHLORHYDRIA [None]
  - MOUTH ULCERATION [None]
  - ORAL FUNGAL INFECTION [None]
  - ORAL MUCOSAL ERUPTION [None]
  - STOMATITIS [None]
  - THROAT IRRITATION [None]
